FAERS Safety Report 14404581 (Version 1)
Quarter: 2018Q1

REPORT INFORMATION
  Report Type: Spontaneous
  Country: US (occurrence: US)
  Receive Date: 20180117
  Receipt Date: 20180117
  Transmission Date: 20180509
  Serious: Yes (Other)
  Sender: FDA-Public Use
  Company Number: US-SA-2016SA233615

PATIENT
  Age: 55 Year
  Sex: Female
  Weight: 86 kg

DRUGS (7)
  1. TAXOTERE [Suspect]
     Active Substance: DOCETAXEL
     Indication: INTRADUCTAL PROLIFERATIVE BREAST LESION
     Route: 051
     Dates: start: 20120510, end: 20120510
  2. TAMOXIFEN [Concomitant]
     Active Substance: TAMOXIFEN
     Route: 065
     Dates: start: 201209
  3. METFORMIN [Concomitant]
     Active Substance: METFORMIN HYDROCHLORIDE
     Route: 065
     Dates: start: 2010
  4. SIMVASTATIN. [Concomitant]
     Active Substance: SIMVASTATIN
     Route: 065
     Dates: start: 2010
  5. TAXOTERE [Suspect]
     Active Substance: DOCETAXEL
     Indication: INTRADUCTAL PROLIFERATIVE BREAST LESION
     Route: 051
     Dates: start: 20120823, end: 20120823
  6. METOPROLOL. [Concomitant]
     Active Substance: METOPROLOL
     Route: 065
     Dates: start: 2010
  7. HERCEPTIN [Concomitant]
     Active Substance: TRASTUZUMAB

REACTIONS (6)
  - Emotional distress [Unknown]
  - Alopecia [Not Recovered/Not Resolved]
  - Anxiety [Unknown]
  - Impaired quality of life [Unknown]
  - Psychological trauma [Unknown]
  - Pain [Unknown]

NARRATIVE: CASE EVENT DATE: 201302
